FAERS Safety Report 12597407 (Version 1)
Quarter: 2016Q3

REPORT INFORMATION
  Report Type: Spontaneous
  Country: US (occurrence: None)
  Receive Date: 20160726
  Receipt Date: 20160726
  Transmission Date: 20161109
  Serious: Yes (Life-Threatening, Other)
  Sender: FDA-Public Use
  Company Number: None

PATIENT
  Age: 70 Year
  Sex: Male
  Weight: 96.16 kg

DRUGS (11)
  1. SIMVASTATIN. [Concomitant]
     Active Substance: SIMVASTATIN
  2. DULOXETINE. [Concomitant]
     Active Substance: DULOXETINE
  3. METFORMIN [Concomitant]
     Active Substance: METFORMIN HYDROCHLORIDE
  4. VALSARTAN. [Concomitant]
     Active Substance: VALSARTAN
  5. MAGNESIUM OXIDE. [Concomitant]
     Active Substance: MAGNESIUM OXIDE
  6. LANTUS [Concomitant]
     Active Substance: INSULIN GLARGINE
  7. FARXIGA [Suspect]
     Active Substance: DAPAGLIFLOZIN PROPANEDIOL
     Indication: TYPE 2 DIABETES MELLITUS
     Route: 048
  8. CHLORTHALIDONE. [Concomitant]
     Active Substance: CHLORTHALIDONE
  9. ASPIRIN. [Concomitant]
     Active Substance: ASPIRIN
  10. NOVOLOG [Concomitant]
     Active Substance: INSULIN ASPART
  11. ERGOCALCIFEROL. [Concomitant]
     Active Substance: ERGOCALCIFEROL

REACTIONS (2)
  - Bladder cancer [None]
  - Therapy cessation [None]

NARRATIVE: CASE EVENT DATE: 20160101
